FAERS Safety Report 15090659 (Version 1)
Quarter: 2018Q2

REPORT INFORMATION
  Report Type: Spontaneous
  Country: GB (occurrence: FR)
  Receive Date: 20180629
  Receipt Date: 20180629
  Transmission Date: 20180711
  Serious: Yes (Death)
  Sender: FDA-Public Use
  Company Number: FR-FRESENIUS KABI-FK201807187

PATIENT
  Age: 73 Year
  Sex: Male
  Weight: 86 kg

DRUGS (3)
  1. FLUOROURACILE [Suspect]
     Active Substance: FLUOROURACIL
     Indication: COLON CANCER
     Route: 042
     Dates: start: 20170926, end: 20170926
  2. OXALIPLATIN (MANUFACTURER UNKNOWN) [Suspect]
     Active Substance: OXALIPLATIN
     Indication: COLON CANCER
     Route: 042
     Dates: start: 20170926, end: 20170926
  3. ACIDE FOLINIQUE [Suspect]
     Active Substance: LEUCOVORIN
     Indication: COLON CANCER
     Route: 042
     Dates: start: 20170926, end: 20170926

REACTIONS (4)
  - Decreased appetite [Fatal]
  - Asthenia [Fatal]
  - General physical health deterioration [Fatal]
  - Hypoxia [Fatal]

NARRATIVE: CASE EVENT DATE: 20171008
